FAERS Safety Report 4947999-2 (Version None)
Quarter: 2006Q1

REPORT INFORMATION
  Report Type: 
  Country: None (occurrence: None)
  Receive Date: 20060320
  Receipt Date: 20051123
  Transmission Date: 20060701
  Serious: Yes (Hospitalization)
  Sender: FDA-Public Use
  Company Number: US-MERCK-0511USA04270

PATIENT
  Age: 45 Year
  Sex: Male
  Weight: 159 kg

DRUGS (9)
  1. VIOXX [Suspect]
     Indication: PAIN
     Route: 048
     Dates: start: 20000427, end: 20040101
  2. VIOXX [Suspect]
     Route: 048
     Dates: start: 20010201
  3. HUMULIN 70/30 [Concomitant]
     Route: 065
  4. K-TAB [Concomitant]
     Route: 048
  5. DIOVAN [Concomitant]
     Route: 065
  6. LIPITOR [Concomitant]
     Route: 065
  7. ZETIA [Concomitant]
     Route: 065
  8. ISOSORBIDE [Concomitant]
     Route: 048
  9. AVANDAMET [Concomitant]
     Route: 065

REACTIONS (14)
  - DEPRESSION [None]
  - DIZZINESS [None]
  - DYSLIPIDAEMIA [None]
  - FISTULA [None]
  - GASTROOESOPHAGEAL REFLUX DISEASE [None]
  - HEADACHE [None]
  - HYPERTENSIVE HEART DISEASE [None]
  - INSOMNIA [None]
  - JOINT SWELLING [None]
  - MITRAL VALVE PROLAPSE [None]
  - MUSCULOSKELETAL CHEST PAIN [None]
  - MYOCARDIAL ISCHAEMIA [None]
  - NAUSEA [None]
  - PAIN [None]
